FAERS Safety Report 25208269 (Version 2)
Quarter: 2025Q2

REPORT INFORMATION
  Report Type: Spontaneous
  Country: US (occurrence: US)
  Receive Date: 20250417
  Receipt Date: 20250512
  Transmission Date: 20250717
  Serious: Yes (Hospitalization, Other)
  Sender: DOMPE FARMACEUTICI
  Company Number: US-FARMAPROD-202504-1142

PATIENT
  Age: 88 Year
  Sex: Female

DRUGS (14)
  1. OXERVATE [Suspect]
     Active Substance: CENEGERMIN-BKBJ
     Indication: Neurotrophic keratopathy
     Route: 047
     Dates: start: 20250228, end: 20250425
  2. XIIDRA [Concomitant]
     Active Substance: LIFITEGRAST
  3. MINERALS\VITAMINS [Concomitant]
     Active Substance: MINERALS\VITAMINS
  4. POTASSIUM [Concomitant]
     Active Substance: POTASSIUM
  5. LEVOCETIRIZINE DIHYDROCHLORIDE [Concomitant]
     Active Substance: LEVOCETIRIZINE DIHYDROCHLORIDE
  6. BREO ELLIPTA [Concomitant]
     Active Substance: FLUTICASONE FUROATE\VILANTEROL TRIFENATATE
  7. ROSUVASTATIN CALCIUM [Concomitant]
     Active Substance: ROSUVASTATIN CALCIUM
  8. FUROSEMIDE [Concomitant]
     Active Substance: FUROSEMIDE
  9. ELIQUIS [Concomitant]
     Active Substance: APIXABAN
  10. MEMANTINE [Concomitant]
     Active Substance: MEMANTINE
  11. FERROUS SULFATE [Concomitant]
     Active Substance: FERROUS SULFATE
  12. LEVOTHYROXINE SODIUM [Concomitant]
     Active Substance: LEVOTHYROXINE SODIUM
  13. EZETIMIBE [Concomitant]
     Active Substance: EZETIMIBE
  14. ATENOLOL [Concomitant]
     Active Substance: ATENOLOL

REACTIONS (3)
  - Hip fracture [Recovering/Resolving]
  - Fall [Recovering/Resolving]
  - Product dose omission issue [Unknown]

NARRATIVE: CASE EVENT DATE: 20250405
